FAERS Safety Report 7774009-4 (Version None)
Quarter: 2011Q3

REPORT INFORMATION
  Report Type: 
  Country: None (occurrence: None)
  Receive Date: 20110923
  Receipt Date: 20110920
  Transmission Date: 20111222
  Serious: No
  Sender: FDA-Public Use
  Company Number: US-TEVA-301962USA

PATIENT
  Sex: Female
  Weight: 61.744 kg

DRUGS (3)
  1. NUVARING [Concomitant]
     Indication: CONTRACEPTION
     Dates: start: 20110830, end: 20110901
  2. PLAN B ONE-STEP [Suspect]
     Indication: POST COITAL CONTRACEPTION
     Dosage: 1.5 MILLIGRAM;
     Route: 048
     Dates: start: 20110906, end: 20110906
  3. LEVOTHYROXINE SODIUM [Concomitant]
     Indication: HYPOTHYROIDISM
     Dosage: 56 MICROGRAM;
     Route: 048

REACTIONS (1)
  - MENSTRUATION IRREGULAR [None]
